FAERS Safety Report 22266449 (Version 1)
Quarter: 2023Q2

REPORT INFORMATION
  Report Type: Spontaneous
  Country: FR (occurrence: FR)
  Receive Date: 20230428
  Receipt Date: 20230428
  Transmission Date: 20230721
  Serious: Yes (Hospitalization)
  Sender: FDA-Public Use
  Company Number: None

PATIENT
  Age: 25 Year
  Sex: Female

DRUGS (7)
  1. QUETIAPINE [Interacting]
     Active Substance: QUETIAPINE
     Indication: Psychotic disorder
     Route: 065
     Dates: start: 201602
  2. TROPATEPINE HYDROCHLORIDE [Interacting]
     Active Substance: TROPATEPINE HYDROCHLORIDE
     Indication: Psychotic disorder
     Dosage: UNKNOWN,
     Route: 065
     Dates: start: 202303
  3. LOXAPINE [Interacting]
     Active Substance: LOXAPINE
     Indication: Psychotic disorder
     Route: 065
     Dates: start: 201408
  4. ACUPAN [Interacting]
     Active Substance: NEFOPAM HYDROCHLORIDE
     Indication: Pain
     Route: 065
  5. IVABRADINE [Concomitant]
     Active Substance: IVABRADINE
     Indication: Product used for unknown indication
  6. OXAZEPAM [Concomitant]
     Active Substance: OXAZEPAM
     Indication: Psychotic disorder
     Dates: start: 201612
  7. TENOFOVIR DISOPROXIL [Concomitant]
     Active Substance: TENOFOVIR DISOPROXIL
     Indication: Product used for unknown indication

REACTIONS (2)
  - Generalised tonic-clonic seizure [Recovered/Resolved]
  - Drug interaction [Unknown]

NARRATIVE: CASE EVENT DATE: 20230323
